FAERS Safety Report 24758020 (Version 1)
Quarter: 2024Q4

REPORT INFORMATION
  Report Type: Spontaneous
  Country: US (occurrence: US)
  Receive Date: 20241220
  Receipt Date: 20241220
  Transmission Date: 20250114
  Serious: No
  Sender: MERCK
  Company Number: US-009507513-2412USA003118

PATIENT
  Sex: Male

DRUGS (4)
  1. WINREVAIR [Suspect]
     Active Substance: SOTATERCEPT-CSRK
     Indication: Product used for unknown indication
     Dosage: UNK
  2. WINREVAIR [Suspect]
     Active Substance: SOTATERCEPT-CSRK
     Dosage: DOSE DECREASED
     Dates: start: 2024
  3. TYVASO [Suspect]
     Active Substance: TREPROSTINIL
     Indication: Pulmonary arterial hypertension
     Dosage: 108 MICROGRAM, QID
     Dates: start: 202401
  4. SILDENAFIL CITRATE [Concomitant]
     Active Substance: SILDENAFIL CITRATE

REACTIONS (1)
  - Haemoglobin increased [Unknown]

NARRATIVE: CASE EVENT DATE: 20240101
